FAERS Safety Report 20215991 (Version 1)
Quarter: 2021Q4

REPORT INFORMATION
  Report Type: Spontaneous
  Country: CN (occurrence: None)
  Receive Date: 20211222
  Receipt Date: 20211222
  Transmission Date: 20220303
  Serious: Yes (Other)
  Sender: FDA-Public Use
  Company Number: CN-ROCHE-2982446

PATIENT
  Age: 59 Year
  Sex: Female

DRUGS (28)
  1. MABTHERA [Suspect]
     Active Substance: RITUXIMAB
     Indication: Diffuse large B-cell lymphoma
     Dosage: R EPOCH
     Route: 065
     Dates: start: 20190821, end: 201912
  2. MABTHERA [Suspect]
     Active Substance: RITUXIMAB
     Dosage: R2
     Route: 065
     Dates: start: 202003, end: 202004
  3. MABTHERA [Suspect]
     Active Substance: RITUXIMAB
     Dosage: R-GDP
     Route: 065
     Dates: start: 202011, end: 202101
  4. MABTHERA [Suspect]
     Active Substance: RITUXIMAB
     Dosage: R-ICE
     Route: 065
     Dates: start: 202103, end: 202104
  5. MABTHERA [Suspect]
     Active Substance: RITUXIMAB
     Dosage: R
     Route: 065
     Dates: start: 202105, end: 202106
  6. MABTHERA [Suspect]
     Active Substance: RITUXIMAB
     Dosage: R2 + ORELABRUTINIB
     Route: 065
     Dates: start: 20210820
  7. GAZYVA [Suspect]
     Active Substance: OBINUTUZUMAB
     Indication: Diffuse large B-cell lymphoma
     Dosage: GB + CHIDAMIDE
     Route: 042
     Dates: start: 20211125
  8. CYCLOPHOSPHAMIDE [Concomitant]
     Active Substance: CYCLOPHOSPHAMIDE
     Indication: Diffuse large B-cell lymphoma
     Dosage: R EPOCH
     Route: 065
     Dates: start: 20190821, end: 201912
  9. DOXORUBICIN [Concomitant]
     Active Substance: DOXORUBICIN
     Indication: Diffuse large B-cell lymphoma
     Route: 065
  10. VINCRISTINE [Concomitant]
     Active Substance: VINCRISTINE
     Indication: Diffuse large B-cell lymphoma
     Dosage: R-EPOCH
     Route: 065
     Dates: start: 20190821, end: 201912
  11. PREDNISONE [Concomitant]
     Active Substance: PREDNISONE
     Indication: Diffuse large B-cell lymphoma
     Route: 065
  12. THALIDOMIDE [Concomitant]
     Active Substance: THALIDOMIDE
     Indication: Diffuse large B-cell lymphoma
     Route: 048
     Dates: end: 201904
  13. ETOPOSIDE [Concomitant]
     Active Substance: ETOPOSIDE
     Indication: Diffuse large B-cell lymphoma
     Dosage: R EPOCH
     Route: 065
     Dates: start: 20190821, end: 201912
  14. ETOPOSIDE [Concomitant]
     Active Substance: ETOPOSIDE
     Dosage: R-ICE
     Dates: start: 202103, end: 202104
  15. DEXAMETHASONE [Concomitant]
     Active Substance: DEXAMETHASONE
     Indication: Diffuse large B-cell lymphoma
     Dosage: R EPOCH
     Dates: start: 20190821, end: 201912
  16. DEXAMETHASONE [Concomitant]
     Active Substance: DEXAMETHASONE
     Dosage: R-GDP
     Dates: start: 202011, end: 202101
  17. LENALIDOMIDE [Concomitant]
     Active Substance: LENALIDOMIDE
     Indication: Diffuse large B-cell lymphoma
     Dosage: R2
     Route: 065
     Dates: start: 202003, end: 202004
  18. LENALIDOMIDE [Concomitant]
     Active Substance: LENALIDOMIDE
     Dates: start: 202005, end: 202011
  19. LENALIDOMIDE [Concomitant]
     Active Substance: LENALIDOMIDE
     Dosage: R2 + ORELABRUTINIB
     Dates: start: 20210820
  20. LENALIDOMIDE [Concomitant]
     Active Substance: LENALIDOMIDE
     Dosage: ORELABRUTINIB + LENALIDOMIDE
     Route: 048
     Dates: start: 202109
  21. GEMCITABINE [Concomitant]
     Active Substance: GEMCITABINE
     Indication: Diffuse large B-cell lymphoma
     Dosage: R GDP
     Route: 065
     Dates: start: 202011, end: 202101
  22. CISPLATIN [Concomitant]
     Active Substance: CISPLATIN
     Indication: Diffuse large B-cell lymphoma
     Dosage: R GDP
     Route: 065
     Dates: start: 202011, end: 202101
  23. CARBOPLATIN [Concomitant]
     Active Substance: CARBOPLATIN
     Indication: Diffuse large B-cell lymphoma
     Dosage: R ICE
     Route: 065
     Dates: start: 202103, end: 202104
  24. IFOSFAMIDE [Concomitant]
     Active Substance: IFOSFAMIDE
     Indication: Diffuse large B-cell lymphoma
     Dosage: R ICE
     Route: 065
     Dates: start: 202103, end: 202104
  25. ORELABRUTINIB [Concomitant]
     Active Substance: ORELABRUTINIB
     Indication: Diffuse large B-cell lymphoma
     Dosage: R2 + ORELABRUTINIB
     Route: 048
     Dates: start: 20210820
  26. ORELABRUTINIB [Concomitant]
     Active Substance: ORELABRUTINIB
     Dosage: ORELABRUTINIB + LENALIDOMIDE
     Route: 048
     Dates: start: 202109
  27. BENDAMUSTINE [Concomitant]
     Active Substance: BENDAMUSTINE
     Indication: Diffuse large B-cell lymphoma
     Dosage: GB + CHIDAMIDE
     Route: 065
     Dates: start: 20211125
  28. TUCIDINOSTAT [Concomitant]
     Active Substance: TUCIDINOSTAT
     Indication: Diffuse large B-cell lymphoma
     Dosage: GB + CHIDAMIDE
     Route: 065
     Dates: start: 20211125

REACTIONS (3)
  - Infusion related reaction [Unknown]
  - Cytopenia [Unknown]
  - Off label use [Unknown]
